FAERS Safety Report 8792953 (Version 1)
Quarter: 2012Q4

REPORT INFORMATION
  Report Type: 
  Country: DE (occurrence: DE)
  Receive Date: 20120918
  Receipt Date: 20120918
  Transmission Date: 20130627
  Serious: Yes (Hospitalization)
  Sender: FDA-Public Use
  Company Number: DE-SANOFI-AVENTIS-2012SA052396

PATIENT
  Sex: Female
  Weight: 87 kg

DRUGS (6)
  1. MULTAQ [Suspect]
     Indication: CARDIAC DISORDER NOS
     Route: 048
     Dates: start: 2009, end: 2012
  2. MULTAQ [Suspect]
     Indication: CARDIAC DISORDER NOS
     Route: 048
     Dates: start: 2012
  3. ACETYLSALICYLIC ACID [Concomitant]
  4. TORASEMIDE [Concomitant]
  5. ALDACTONE [Concomitant]
  6. MARCUMAR [Concomitant]

REACTIONS (4)
  - Alopecia [Recovering/Resolving]
  - Erythema [Recovering/Resolving]
  - Rash pruritic [Recovering/Resolving]
  - Skin exfoliation [Recovering/Resolving]
